FAERS Safety Report 6103968-0 (Version None)
Quarter: 2009Q1

REPORT INFORMATION
  Report Type: 
  Country: None (occurrence: None)
  Receive Date: 20090227
  Receipt Date: 20090217
  Transmission Date: 20090719
  Serious: Yes (Other)
  Sender: FDA-Public Use
  Company Number: 2009S1000066

PATIENT
  Age: 41 Year
  Sex: Male

DRUGS (4)
  1. CUBICIN [Suspect]
     Indication: ENDOCARDITIS
     Dosage: 6 MG/KG; Q48H; IV
     Route: 042
     Dates: start: 20060201
  2. GENTAMICIN [Concomitant]
  3. RIFAMPICIN [Concomitant]
  4. LINEZOLID [Concomitant]

REACTIONS (8)
  - CEREBRAL ARTERY EMBOLISM [None]
  - CEREBRAL INFARCTION [None]
  - DYSPHASIA [None]
  - OSTEOMYELITIS [None]
  - PATHOGEN RESISTANCE [None]
  - STAPHYLOCOCCAL BACTERAEMIA [None]
  - THERAPEUTIC PRODUCT INEFFECTIVE FOR UNAPPROVED INDICATION [None]
  - TREATMENT FAILURE [None]
